FAERS Safety Report 9340097 (Version 1)
Quarter: 2013Q2

REPORT INFORMATION
  Report Type: Spontaneous
  Country: US (occurrence: None)
  Receive Date: 20130607
  Receipt Date: 20130607
  Transmission Date: 20140414
  Serious: Yes (Hospitalization)
  Sender: FDA-Public Use
  Company Number: None

PATIENT
  Age: 71 Year
  Sex: Male
  Weight: 75 kg

DRUGS (3)
  1. WARFARIN [Suspect]
     Indication: CEREBROVASCULAR ACCIDENT
     Dates: start: 20130307, end: 20130503
  2. WARFARIN [Suspect]
     Indication: AORTIC VALVE REPLACEMENT
     Dates: start: 20130307, end: 20130503
  3. WARFARIN [Suspect]
     Indication: PROPHYLAXIS
     Dates: start: 20130307, end: 20130503

REACTIONS (7)
  - Unresponsive to stimuli [None]
  - Urinary incontinence [None]
  - Faecal incontinence [None]
  - Rectal haemorrhage [None]
  - Haemorrhagic anaemia [None]
  - Contusion [None]
  - Gastric haemorrhage [None]
